FAERS Safety Report 9356546 (Version 1)
Quarter: 2013Q2

REPORT INFORMATION
  Report Type: Spontaneous
  Country: US (occurrence: US)
  Receive Date: 20130619
  Receipt Date: 20130619
  Transmission Date: 20140414
  Serious: Yes (Hospitalization)
  Sender: FDA-Public Use
  Company Number: US-MYLANLABS-2013S1010277

PATIENT
  Age: 83 Year
  Sex: Female
  Weight: 88 kg

DRUGS (9)
  1. LEVOTHYROXINE SODIUM TABLETS, USP [Suspect]
     Indication: HYPOTHYROIDISM
     Route: 048
     Dates: start: 201104, end: 201104
  2. LEVOTHYROXINE SODIUM TABLETS, USP [Suspect]
     Dates: start: 2010
  3. LEVOTHYROXINE SODIUM TABLETS, USP [Suspect]
     Dates: start: 20110216, end: 201103
  4. SIMVASTATIN [Concomitant]
     Indication: BLOOD CHOLESTEROL INCREASED
     Route: 048
  5. METOPROLOL [Concomitant]
     Indication: BLOOD PRESSURE INCREASED
  6. IRON TABLETS [Concomitant]
  7. FUROSEMIDE [Concomitant]
     Indication: DIURETIC THERAPY
  8. DOCUSATE [Concomitant]
  9. SENNA [Concomitant]

REACTIONS (2)
  - Depressed level of consciousness [Recovered/Resolved]
  - Disorientation [Recovered/Resolved]
